FAERS Safety Report 5441604-7 (Version None)
Quarter: 2007Q3

REPORT INFORMATION
  Report Type: 
  Country: None (occurrence: None)
  Receive Date: 20070829
  Receipt Date: 20070823
  Transmission Date: 20080115
  Serious: Yes (Death)
  Sender: FDA-Public Use
  Company Number: 2007S1000143

PATIENT
  Age: 10 Day
  Sex: Male
  Weight: 0.72 kg

DRUGS (11)
  1. NITRIC OXIDE [Suspect]
     Indication: LUNG DISORDER
     Dosage: 5 PPM; CONT; INH
     Route: 055
     Dates: start: 20070622, end: 20070701
  2. NITRIC OXIDE [Suspect]
     Indication: PROPHYLAXIS
     Dosage: 5 PPM; CONT; INH
     Route: 055
     Dates: start: 20070622, end: 20070701
  3. INOMAX [Suspect]
     Dosage: ; CONT;
     Dates: start: 20070701
  4. CEFOTAXIME SODIUM [Concomitant]
  5. VANCOMYCIN [Concomitant]
  6. GENTAMICIN [Concomitant]
  7. FENTANYL [Concomitant]
  8. FUROSEMIDE [Concomitant]
  9. DOPAMINE HCL [Concomitant]
  10. DOBUTAMINE HCL [Concomitant]
  11. ADRENALINE [Concomitant]

REACTIONS (8)
  - BLOOD PRESSURE ABNORMAL [None]
  - GENERAL PHYSICAL HEALTH DETERIORATION [None]
  - HYPERCAPNIA [None]
  - HYPOXIA [None]
  - METABOLIC ACIDOSIS [None]
  - MULTI-ORGAN FAILURE [None]
  - OXYGEN CONSUMPTION INCREASED [None]
  - RENAL DISORDER [None]
